FAERS Safety Report 8843063 (Version 2)
Quarter: 2012Q4

REPORT INFORMATION
  Report Type: 
  Country: JP (occurrence: JP)
  Receive Date: 20121016
  Receipt Date: 20121022
  Transmission Date: 20130627
  Serious: Yes (Other)
  Sender: FDA-Public Use
  Company Number: JP-PFIZER INC-2012254928

PATIENT
  Age: 75 Year
  Sex: Female

DRUGS (2)
  1. LIPITOR [Suspect]
     Indication: DYSLIPIDAEMIA
     Dosage: UNK
     Route: 048
     Dates: start: 2011, end: 2012
  2. LIPITOR [Suspect]
     Dosage: UNK
     Route: 048
     Dates: start: 2012, end: 2012

REACTIONS (2)
  - Dermatomyositis [Recovering/Resolving]
  - Myalgia [Not Recovered/Not Resolved]
